FAERS Safety Report 9696946 (Version 3)
Quarter: 2013Q4

REPORT INFORMATION
  Report Type: Spontaneous
  Country: US (occurrence: US)
  Receive Date: 20131119
  Receipt Date: 20131203
  Transmission Date: 20140711
  Serious: Yes (Hospitalization)
  Sender: FDA-Public Use
  Company Number: US-GILEAD-2013-0088100

PATIENT
  Age: 61 Year
  Sex: Male

DRUGS (7)
  1. LETAIRIS [Suspect]
     Indication: PULMONARY HYPERTENSION
     Dosage: 10 MG, UNK
     Dates: start: 20090303
  2. LETAIRIS [Suspect]
     Indication: HEART TRANSPLANT
  3. TRAMADOL [Suspect]
     Indication: PRODUCT USED FOR UNKNOWN INDICATION
     Dosage: UNK
     Dates: end: 201311
  4. OXYCONTIN [Suspect]
     Indication: PRODUCT USED FOR UNKNOWN INDICATION
     Dosage: UNK
     Dates: end: 201311
  5. NEURONTIN [Concomitant]
  6. COUMADIN                           /00014802/ [Concomitant]
  7. LYRICA [Concomitant]

REACTIONS (2)
  - Adverse drug reaction [Not Recovered/Not Resolved]
  - Carbon dioxide increased [Unknown]
